FAERS Safety Report 10801650 (Version 1)
Quarter: 2015Q1

REPORT INFORMATION
  Report Type: Spontaneous
  Country: FR (occurrence: FR)
  Receive Date: 20150217
  Receipt Date: 20150217
  Transmission Date: 20150721
  Serious: Yes (Other)
  Sender: FDA-Public Use
  Company Number: FR-JNJFOC-20150201447

PATIENT
  Age: 43 Year
  Sex: Male

DRUGS (10)
  1. CAELYX [Suspect]
     Active Substance: DOXORUBICIN HYDROCHLORIDE
     Indication: HODGKIN^S DISEASE
     Dosage: 3 COURSES (D1 = D21)
     Route: 042
     Dates: start: 20141124, end: 20150105
  2. PLITICAN [Concomitant]
     Active Substance: ALIZAPRIDE HYDROCHLORIDE
     Indication: ANTIEMETIC SUPPORTIVE CARE
     Dosage: DAY 1 AND D8
     Route: 065
  3. GRANOCYTE [Concomitant]
     Active Substance: LENOGRASTIM
     Dosage: AT D8 (5 INJECTIONS FOR 1ST CYCLE AND 4 INJECTIONS FOR 2ND CYCLE)
     Route: 065
  4. GEMZAR [Suspect]
     Active Substance: GEMCITABINE HYDROCHLORIDE
     Indication: HODGKIN^S DISEASE
     Route: 042
     Dates: start: 20150105, end: 20150112
  5. ONDANSETRON [Concomitant]
     Active Substance: ONDANSETRON
     Indication: ANTIEMETIC SUPPORTIVE CARE
     Dosage: DAY 1 AND D8
     Route: 065
  6. EMEND [Concomitant]
     Active Substance: APREPITANT
     Indication: ANTIEMETIC SUPPORTIVE CARE
     Dosage: DAY 1 TO D3AND FROM DAY 8 TO DAY 10
     Route: 065
  7. GEMZAR [Suspect]
     Active Substance: GEMCITABINE HYDROCHLORIDE
     Indication: HODGKIN^S DISEASE
     Route: 042
     Dates: start: 20141124, end: 20141201
  8. GEMZAR [Suspect]
     Active Substance: GEMCITABINE HYDROCHLORIDE
     Indication: HODGKIN^S DISEASE
     Route: 042
     Dates: start: 20141215, end: 20141222
  9. VELBE [Suspect]
     Active Substance: VINBLASTINE SULFATE
     Indication: HODGKIN^S DISEASE
     Dosage: 3 CYCLES: D1=D21
     Route: 042
     Dates: start: 20141124, end: 20150105
  10. CEFTRIAXONE. [Concomitant]
     Active Substance: CEFTRIAXONE
     Dosage: ON DAY 10 FOR ONE AND HALF WEEKS
     Route: 065

REACTIONS (2)
  - Product use issue [Unknown]
  - Drug eruption [Not Recovered/Not Resolved]

NARRATIVE: CASE EVENT DATE: 201412
